FAERS Safety Report 14018217 (Version 2)
Quarter: 2017Q4

REPORT INFORMATION
  Report Type: Spontaneous
  Country: US (occurrence: US)
  Receive Date: 20170928
  Receipt Date: 20171005
  Transmission Date: 20180321
  Serious: Yes (Hospitalization, Other)
  Sender: FDA-Public Use
  Company Number: US-009507513-1709USA010869

PATIENT
  Sex: Female

DRUGS (6)
  1. HEXADROL [Suspect]
     Active Substance: DEXAMETHASONE
     Indication: PRECURSOR B-LYMPHOBLASTIC LYMPHOMA
     Dosage: 2 CYCLES  (MOD 1A, 1B; MOD 2A, 2B)
     Route: 048
     Dates: start: 20160728
  2. CYCLOPHOSPHAMIDE (+) DOXORUBICIN (+) VINCRISTINE SULFATE [Suspect]
     Active Substance: CYCLOPHOSPHAMIDE\DOXORUBICIN\VINCRISTINE
     Indication: PRECURSOR B-LYMPHOBLASTIC LYMPHOMA
     Dosage: 2 CYCLES  (MOD 1A, 1B; MOD 2A, 2B)
     Dates: start: 20160728
  3. METHOTREXATE. [Suspect]
     Active Substance: METHOTREXATE
     Indication: PRECURSOR B-LYMPHOBLASTIC LYMPHOMA
     Dosage: 12 DOSE
     Route: 037
  4. HEXADROL [Suspect]
     Active Substance: DEXAMETHASONE
     Dosage: MOD 3B
     Route: 048
     Dates: start: 20170104
  5. CYCLOPHOSPHAMIDE (+) DOXORUBICIN (+) VINCRISTINE SULFATE [Suspect]
     Active Substance: CYCLOPHOSPHAMIDE\DOXORUBICIN\VINCRISTINE
     Dosage: MOD 3B, CYCLICAL
     Dates: start: 20170104
  6. CYTARABINE. [Suspect]
     Active Substance: CYTARABINE
     Indication: PRECURSOR B-LYMPHOBLASTIC LYMPHOMA
     Dosage: 12 DOSE
     Route: 037

REACTIONS (1)
  - Precursor B-lymphoblastic lymphoma recurrent [Unknown]

NARRATIVE: CASE EVENT DATE: 20170206
